FAERS Safety Report 21343864 (Version 1)
Quarter: 2022Q3

REPORT INFORMATION
  Report Type: Spontaneous
  Country: GB (occurrence: GB)
  Receive Date: 20220916
  Receipt Date: 20220916
  Transmission Date: 20221026
  Serious: Yes (Hospitalization)
  Sender: FDA-Public Use
  Company Number: GB-Actavis-082296

PATIENT
  Sex: Male

DRUGS (1)
  1. PIRFENIDONE [Suspect]
     Active Substance: PIRFENIDONE
     Indication: Product used for unknown indication
     Dosage: DOSE: 9 PER DAY;UNIT DOSE : 267 MG, THERAPY END DATE : NOT ASKED
     Route: 050
     Dates: start: 20220705

REACTIONS (2)
  - Abdominal discomfort [Unknown]
  - Fatigue [Unknown]
